FAERS Safety Report 9733028 (Version 2)
Quarter: 2015Q3

REPORT INFORMATION
  Report Type: Spontaneous
  Country: US (occurrence: US)
  Receive Date: 20131204
  Receipt Date: 20150804
  Transmission Date: 20151125
  Serious: No
  Sender: FDA-Public Use
  Company Number: US-GILEAD-2009-0021960

PATIENT
  Age: 71 Year
  Sex: Female
  Weight: 56.7 kg

DRUGS (8)
  1. LETAIRIS [Suspect]
     Active Substance: AMBRISENTAN
     Indication: PULMONARY ARTERIAL HYPERTENSION
     Route: 048
     Dates: start: 20080111
  2. ZANTAC [Concomitant]
     Active Substance: RANITIDINE HYDROCHLORIDE
  3. LEVSIN [Concomitant]
     Active Substance: HYOSCYAMINE SULFATE
  4. DIGOXIN. [Concomitant]
     Active Substance: DIGOXIN
  5. COUMADIN [Concomitant]
     Active Substance: WARFARIN SODIUM
  6. MULTIVITAMIN [Concomitant]
     Active Substance: VITAMINS
  7. VALIUM [Concomitant]
     Active Substance: DIAZEPAM
  8. CALCIUM [Concomitant]
     Active Substance: CALCIUM

REACTIONS (5)
  - Hot flush [Unknown]
  - Palpitations [Unknown]
  - Abdominal pain [Unknown]
  - Constipation [Unknown]
  - Throat irritation [Unknown]
